FAERS Safety Report 9786279 (Version 3)
Quarter: 2014Q1

REPORT INFORMATION
  Report Type: Spontaneous
  Country: US (occurrence: US)
  Receive Date: 20131227
  Receipt Date: 20140213
  Transmission Date: 20141002
  Serious: Yes (Disabling)
  Sender: FDA-Public Use
  Company Number: US-UCBSA-106275

PATIENT
  Age: 25 Year
  Sex: Male

DRUGS (3)
  1. METHYLPHENIDATE HYDROCHLORIDE [Suspect]
     Indication: ATTENTION DEFICIT/HYPERACTIVITY DISORDER
     Dosage: ON IMMEDIATE RELEASE 10 MG CAPSULE AS NEEDED
     Route: 048
  2. METHYLPHENIDATE [Suspect]
     Indication: ATTENTION DEFICIT/HYPERACTIVITY DISORDER
  3. NO CONCOMITANT MEDICATION [Concomitant]

REACTIONS (5)
  - Impaired work ability [Unknown]
  - Drug ineffective [Unknown]
  - Somnolence [Unknown]
  - Hunger [Unknown]
  - Incorrect product storage [Unknown]
